FAERS Safety Report 24622494 (Version 1)
Quarter: 2024Q4

REPORT INFORMATION
  Report Type: Report from Study
  Country: UY (occurrence: UY)
  Receive Date: 20241115
  Receipt Date: 20241115
  Transmission Date: 20250114
  Serious: Yes (Other)
  Sender: ABBVIE
  Company Number: UY-ABBVIE-6001147

PATIENT
  Sex: Female

DRUGS (1)
  1. HUMIRA [Suspect]
     Active Substance: ADALIMUMAB
     Indication: Psoriatic arthropathy
     Dosage: FORM STRENGTH: 40MG
     Route: 058
     Dates: start: 20230123, end: 2024

REACTIONS (3)
  - Oral disorder [Recovered/Resolved]
  - Spinal disorder [Not Recovered/Not Resolved]
  - Muscle strain [Not Recovered/Not Resolved]
